FAERS Safety Report 13465970 (Version 1)
Quarter: 2017Q2

REPORT INFORMATION
  Report Type: Spontaneous
  Country: US (occurrence: US)
  Receive Date: 20170421
  Receipt Date: 20170421
  Transmission Date: 20170830
  Serious: No
  Sender: FDA-Public Use
  Company Number: US-ALVOGEN-2016-ALVOGEN-087014

PATIENT
  Sex: Female

DRUGS (2)
  1. GLYCOPYRROLATE AND FORMOTEROL FUMARATE [Interacting]
     Active Substance: FORMOTEROL FUMARATE\GLYCOPYRROLATE
     Indication: CHRONIC OBSTRUCTIVE PULMONARY DISEASE
     Route: 055
     Dates: start: 20161122
  2. ATENOLOL. [Suspect]
     Active Substance: ATENOLOL
     Indication: PROPHYLAXIS
     Dosage: DAILY

REACTIONS (4)
  - Cough [Not Recovered/Not Resolved]
  - Drug interaction [Unknown]
  - Chest discomfort [Not Recovered/Not Resolved]
  - Gastrooesophageal reflux disease [None]

NARRATIVE: CASE EVENT DATE: 20161123
